FAERS Safety Report 7259592-X (Version None)
Quarter: 2011Q1

REPORT INFORMATION
  Report Type: 
  Country: None (occurrence: None)
  Receive Date: 20110130
  Receipt Date: 20101129
  Transmission Date: 20110831
  Serious: No
  Sender: FDA-Public Use
  Company Number: PR-ABBOTT-10P-131-0688602-00

PATIENT
  Sex: Male
  Weight: 136.2 kg

DRUGS (6)
  1. XANAX [Concomitant]
     Indication: SLEEP DISORDER
     Dosage: 1 TABLET BEFORE SLEEP
     Route: 048
  2. HUMIRA [Suspect]
     Indication: PSORIATIC ARTHROPATHY
     Dosage: 1 PEN EVERY 15 DAYS
     Route: 058
     Dates: start: 20100201, end: 20101101
  3. ONGLYZA [Concomitant]
     Indication: DIABETES MELLITUS
     Dosage: 1 TABLET DAILY
     Route: 048
  4. REMERON [Concomitant]
     Indication: SLEEP DISORDER
     Dosage: 1 TABLET BEFORE SLEEP
     Route: 048
  5. ENALAPRIL MALEATE [Concomitant]
     Indication: HYPERTENSION
     Dosage: 1 TABLET DAILY
     Route: 048
  6. AMBIEN [Concomitant]
     Indication: SLEEP DISORDER
     Dosage: 1 TABLET BEFORE SLEEP
     Route: 048

REACTIONS (2)
  - PRURITUS [None]
  - PSORIASIS [None]
